FAERS Safety Report 16734588 (Version 1)
Quarter: 2019Q4

REPORT INFORMATION
  Report Type: Spontaneous
  Country: US (occurrence: US)
  Receive Date: 20190822
  Receipt Date: 20190822
  Transmission Date: 20200122
  Serious: No
  Sender: FDA-Public Use
  Company Number: None

PATIENT
  Age: 72 Year
  Sex: Male
  Weight: 81 kg

DRUGS (5)
  1. ATORVASTATIN (80 MG) [Concomitant]
  2. CLOPIDOGREL (75 MG) [Concomitant]
  3. FISH OIL + BETA SISTOSTEROL [Concomitant]
  4. ALL DAY ALLERGY RELIEF [Suspect]
     Active Substance: CETIRIZINE HYDROCHLORIDE
     Indication: SECRETION DISCHARGE
     Dosage: ?          QUANTITY:1 TABLET(S);?
     Route: 048
     Dates: start: 20190814, end: 20190822
  5. CARVEDILOL (3.125 MG) [Concomitant]

REACTIONS (3)
  - Suspected product contamination [None]
  - Malaise [None]
  - Product origin unknown [None]

NARRATIVE: CASE EVENT DATE: 20190820
